FAERS Safety Report 21699431 (Version 1)
Quarter: 2022Q4

REPORT INFORMATION
  Report Type: Spontaneous
  Country: JP (occurrence: JP)
  Receive Date: 20221208
  Receipt Date: 20221208
  Transmission Date: 20230112
  Serious: Yes (Other)
  Sender: FDA-Public Use
  Company Number: JP-ORPHANEU-2022006494

PATIENT

DRUGS (3)
  1. CARGLUMIC ACID [Suspect]
     Active Substance: CARGLUMIC ACID
     Indication: Methylmalonic aciduria
     Route: 065
  2. SUGAR [SUCROSE] [Concomitant]
     Indication: Prophylaxis
     Dosage: HIGH CONCENTRATION
  3. LEVOCARNITINE [Concomitant]
     Active Substance: LEVOCARNITINE
     Indication: Prophylaxis
     Dosage: UNK

REACTIONS (4)
  - Altered state of consciousness [Unknown]
  - Respiratory failure [Unknown]
  - Poor feeding infant [Recovering/Resolving]
  - Skin exfoliation [Recovering/Resolving]
